FAERS Safety Report 10249852 (Version 1)
Quarter: 2014Q2

REPORT INFORMATION
  Report Type: Spontaneous
  Country: US (occurrence: US)
  Receive Date: 20140620
  Receipt Date: 20140620
  Transmission Date: 20141212
  Serious: No
  Sender: FDA-Public Use
  Company Number: US-ROXANE LABORATORIES, INC.-2014-RO-00945RO

PATIENT
  Sex: Female

DRUGS (2)
  1. METHADONE [Suspect]
     Indication: SPINAL OSTEOARTHRITIS
     Dosage: 20 MG
     Route: 048
  2. METHADONE [Suspect]
     Indication: OSTEOARTHRITIS

REACTIONS (5)
  - Rosacea [Recovered/Resolved]
  - Pruritus [Recovered/Resolved]
  - Body temperature increased [Recovered/Resolved]
  - Dyspnoea [Recovered/Resolved]
  - Lip swelling [Recovered/Resolved]
